FAERS Safety Report 18396815 (Version 1)
Quarter: 2020Q4

REPORT INFORMATION
  Report Type: Spontaneous
  Country: TR (occurrence: TR)
  Receive Date: 20201019
  Receipt Date: 20201019
  Transmission Date: 20210114
  Serious: Yes (Life-Threatening, Other)
  Sender: FDA-Public Use
  Company Number: TR-SUN PHARMACEUTICAL INDUSTRIES LTD-2020R1-264312

PATIENT
  Age: 45 Year
  Sex: Female

DRUGS (2)
  1. DULOXETINE. [Suspect]
     Active Substance: DULOXETINE
     Indication: ANXIETY DISORDER
  2. DULOXETINE. [Suspect]
     Active Substance: DULOXETINE
     Indication: MIGRAINE
     Dosage: 30 MILLIGRAM, DAILY
     Route: 065

REACTIONS (6)
  - Brain oedema [Unknown]
  - Hyponatraemia [Recovered/Resolved]
  - Agitation [Unknown]
  - Loss of consciousness [Unknown]
  - Seizure [Unknown]
  - Hypokalaemia [Unknown]
